FAERS Safety Report 6588716-2 (Version None)
Quarter: 2010Q1

REPORT INFORMATION
  Report Type: 
  Country: None (occurrence: None)
  Receive Date: 20100218
  Receipt Date: 20100212
  Transmission Date: 20100710
  Serious: Yes (Other)
  Sender: FDA-Public Use
  Company Number: A0844928A

PATIENT
  Age: 73 Year
  Sex: Male

DRUGS (3)
  1. NEOTIGASON [Suspect]
     Indication: ERYTHRODERMIC PSORIASIS
     Dosage: 25MG PER DAY
     Route: 048
     Dates: start: 20091201
  2. SCABIES TREATMENT [Concomitant]
  3. CORTICOSTEROID [Concomitant]

REACTIONS (6)
  - ANAEMIA [None]
  - BLOOD ALKALINE PHOSPHATASE INCREASED [None]
  - GAMMA-GLUTAMYLTRANSFERASE INCREASED [None]
  - HAEMATURIA [None]
  - RED BLOOD CELLS URINE [None]
  - TRANSAMINASES INCREASED [None]
